FAERS Safety Report 18621147 (Version 1)
Quarter: 2020Q4

REPORT INFORMATION
  Report Type: Spontaneous
  Country: AU (occurrence: AU)
  Receive Date: 20201216
  Receipt Date: 20201216
  Transmission Date: 20210114
  Serious: Yes (Hospitalization)
  Sender: FDA-Public Use
  Company Number: AU-ACCORD-210900

PATIENT
  Age: 38 Year
  Sex: Male

DRUGS (7)
  1. CLOZARIL [Suspect]
     Active Substance: CLOZAPINE
     Indication: SCHIZOPHRENIA
     Dosage: QD, 50 MG, QD, MANE ONLY
     Route: 048
     Dates: start: 20201112, end: 20201112
  2. CLOZARIL [Suspect]
     Active Substance: CLOZAPINE
     Indication: SCHIZOPHRENIA
     Dosage: QD
     Route: 048
  3. CLOZARIL [Suspect]
     Active Substance: CLOZAPINE
     Indication: SCHIZOPHRENIA
     Route: 048
     Dates: start: 20201030
  4. CLOZARIL [Suspect]
     Active Substance: CLOZAPINE
     Indication: SCHIZOPHRENIA
     Route: 048
     Dates: end: 20201112
  5. QUETIAPINE. [Suspect]
     Active Substance: QUETIAPINE
     Indication: PRODUCT USED FOR UNKNOWN INDICATION
     Dosage: QD
     Dates: start: 2020
  6. CLOZARIL [Suspect]
     Active Substance: CLOZAPINE
     Indication: SCHIZOPHRENIA
     Dosage: AM
     Route: 048
     Dates: start: 20201029
  7. OLANZAPINE. [Suspect]
     Active Substance: OLANZAPINE
     Indication: PRODUCT USED FOR UNKNOWN INDICATION
     Dosage: QD
     Route: 048
     Dates: start: 2020

REACTIONS (22)
  - Drug ineffective [Unknown]
  - Haemoglobin decreased [Recovered/Resolved]
  - Dizziness [Unknown]
  - Eosinophil count increased [Recovering/Resolving]
  - Sinus tachycardia [Unknown]
  - Pyrexia [Unknown]
  - Platelet count decreased [Recovered/Resolved]
  - C-reactive protein increased [Recovered/Resolved]
  - Neutrophil count increased [Recovered/Resolved]
  - Diarrhoea [Unknown]
  - Schizophrenia [Unknown]
  - Blood creatine phosphokinase decreased [Unknown]
  - Blood magnesium decreased [Unknown]
  - N-terminal prohormone brain natriuretic peptide increased [Unknown]
  - Fatigue [Unknown]
  - Lymphocyte count decreased [Recovered/Resolved]
  - Myocarditis [Unknown]
  - Blood bilirubin decreased [Not Recovered/Not Resolved]
  - Fluid intake reduced [Unknown]
  - Hypophagia [Unknown]
  - Troponin I increased [Recovered/Resolved]
  - Gamma-glutamyltransferase increased [Recovering/Resolving]

NARRATIVE: CASE EVENT DATE: 202011
